FAERS Safety Report 15978959 (Version 2)
Quarter: 2019Q1

REPORT INFORMATION
  Report Type: Report from Study
  Country: US (occurrence: US)
  Receive Date: 20190219
  Receipt Date: 20190320
  Transmission Date: 20190418
  Serious: Yes (Other)
  Sender: FDA-Public Use
  Company Number: US-ROCHE-2264651

PATIENT
  Age: 63 Year
  Sex: Male
  Weight: 99.88 kg

DRUGS (3)
  1. TIZANIDINE. [Concomitant]
     Active Substance: TIZANIDINE
     Route: 048
  2. OCREVUS [Suspect]
     Active Substance: OCRELIZUMAB
     Indication: RELAPSING MULTIPLE SCLEROSIS
     Route: 042
     Dates: start: 201805
  3. VITAMIN B12 [Concomitant]
     Active Substance: CYANOCOBALAMIN
     Route: 048

REACTIONS (4)
  - Influenza [Not Recovered/Not Resolved]
  - Cough [Not Recovered/Not Resolved]
  - Pharyngitis streptococcal [Not Recovered/Not Resolved]
  - Fall [Unknown]

NARRATIVE: CASE EVENT DATE: 201812
